FAERS Safety Report 4803665-5 (Version None)
Quarter: 2005Q4

REPORT INFORMATION
  Report Type: 
  Country: None (occurrence: None)
  Receive Date: 20051017
  Receipt Date: 20050525
  Transmission Date: 20060501
  Serious: No
  Sender: FDA-Public Use
  Company Number: DSA_70658_2005

PATIENT
  Age: 63 Year
  Sex: Male

DRUGS (7)
  1. ROXICODONE [Suspect]
     Indication: EXOSTOSIS
     Dosage: 3 TAB QDAY PO;  1 TAB ONCE PO
     Route: 048
     Dates: start: 20050516, end: 20050516
  2. ROXICODONE [Suspect]
     Indication: INTERVERTEBRAL DISC PROTRUSION
     Dosage: 3 TAB QDAY PO;  1 TAB ONCE PO
     Route: 048
     Dates: start: 20050516, end: 20050516
  3. ROXICODONE [Suspect]
     Indication: PAIN
     Dosage: 3 TAB QDAY PO;  1 TAB ONCE PO
     Route: 048
     Dates: start: 20050516, end: 20050516
  4. ROXICODONE [Suspect]
     Indication: EXOSTOSIS
     Dosage: 3 TAB QDAY PO;  1 TAB ONCE PO
     Route: 048
     Dates: start: 20050513
  5. ROXICODONE [Suspect]
     Indication: INTERVERTEBRAL DISC PROTRUSION
     Dosage: 3 TAB QDAY PO;  1 TAB ONCE PO
     Route: 048
     Dates: start: 20050513
  6. ROXICODONE [Suspect]
     Indication: PAIN
     Dosage: 3 TAB QDAY PO;  1 TAB ONCE PO
     Route: 048
     Dates: start: 20050513
  7. OXYCODONE [Concomitant]

REACTIONS (3)
  - ANAPHYLACTIC REACTION [None]
  - DYSPNOEA [None]
  - SWOLLEN TONGUE [None]
